FAERS Safety Report 9331954 (Version 1)
Quarter: 2013Q2

REPORT INFORMATION
  Report Type: Spontaneous
  Country: US (occurrence: None)
  Receive Date: 20130603
  Receipt Date: 20130603
  Transmission Date: 20140414
  Serious: Yes (Other)
  Sender: FDA-Public Use
  Company Number: US-1198433

PATIENT
  Sex: Female

DRUGS (1)
  1. BETOPTIC [Suspect]
     Dosage: OPHTALMIC
     Route: 047

REACTIONS (2)
  - Anosmia [None]
  - Ageusia [None]
